FAERS Safety Report 22239701 (Version 1)
Quarter: 2023Q2

REPORT INFORMATION
  Report Type: Spontaneous
  Country: US (occurrence: US)
  Receive Date: 20230421
  Receipt Date: 20230421
  Transmission Date: 20230721
  Serious: No
  Sender: FDA-Public Use
  Company Number: US-SA-SAC20230418001201

PATIENT
  Sex: Female

DRUGS (2)
  1. ALPROLIX [Suspect]
     Active Substance: EFTRENONACOG ALFA
     Dosage: 1000 U, PRN FOR BLEEDING
     Route: 042
  2. ALPROLIX [Suspect]
     Active Substance: EFTRENONACOG ALFA
     Dosage: 1000 U, PRN FOR BLEEDING
     Route: 042

REACTIONS (1)
  - Fall [Unknown]

NARRATIVE: CASE EVENT DATE: 20220101
